FAERS Safety Report 7792668-7 (Version None)
Quarter: 2011Q3

REPORT INFORMATION
  Report Type: 
  Country: None (occurrence: None)
  Receive Date: 20110930
  Receipt Date: 20110930
  Transmission Date: 20111222
  Serious: Yes (Life-Threatening, Hospitalization)
  Sender: FDA-Public Use
  Company Number: None

PATIENT
  Age: 62 Year
  Sex: Female
  Weight: 47.6277 kg

DRUGS (1)
  1. PROLIA [Suspect]
     Indication: OSTEOPOROSIS
     Dosage: INJECTION 6 MONTH DOSAGE
     Dates: start: 20110819

REACTIONS (11)
  - PRURITUS [None]
  - PAIN [None]
  - EYE SWELLING [None]
  - NAUSEA [None]
  - SWELLING [None]
  - BLOOD PRESSURE INCREASED [None]
  - LIP SWELLING [None]
  - LYMPHADENOPATHY [None]
  - BLISTER [None]
  - PYREXIA [None]
  - ERYTHEMA [None]
